FAERS Safety Report 10474412 (Version 1)
Quarter: 2014Q3

REPORT INFORMATION
  Report Type: Spontaneous
  Country: US (occurrence: US)
  Receive Date: 20140924
  Receipt Date: 20140924
  Transmission Date: 20150326
  Serious: Yes (Other)
  Sender: FDA-Public Use
  Company Number: US-PFIZER INC-2014263040

PATIENT
  Age: 52 Year
  Sex: Male

DRUGS (2)
  1. XANAX [Suspect]
     Active Substance: ALPRAZOLAM
     Dosage: UNK
  2. XANAX [Suspect]
     Active Substance: ALPRAZOLAM
     Indication: SLEEP DISORDER
     Dosage: 2 MG, UNK

REACTIONS (7)
  - Paranoia [Unknown]
  - Depression [Unknown]
  - Drug ineffective for unapproved indication [Unknown]
  - Nervousness [Unknown]
  - Toxicity to various agents [Unknown]
  - Personality change [Unknown]
  - Fear of death [Unknown]
